FAERS Safety Report 6869844-0 (Version None)
Quarter: 2010Q3

REPORT INFORMATION
  Report Type: 
  Country: None (occurrence: None)
  Receive Date: 20100722
  Receipt Date: 20080908
  Transmission Date: 20110219
  Serious: No
  Sender: FDA-Public Use
  Company Number: US-PFIZER INC-2008078390

PATIENT
  Sex: Female
  Weight: 52.62 kg

DRUGS (2)
  1. CHANTIX [Suspect]
     Indication: SMOKING CESSATION THERAPY
     Dates: start: 20080902
  2. VITAMINS [Concomitant]

REACTIONS (5)
  - ABDOMEN CRUSHING [None]
  - ABDOMINAL PAIN UPPER [None]
  - CONSTIPATION [None]
  - GASTROINTESTINAL DISORDER [None]
  - MUSCLE SPASMS [None]
